FAERS Safety Report 24327647 (Version 2)
Quarter: 2024Q3

REPORT INFORMATION
  Report Type: Spontaneous
  Country: US (occurrence: US)
  Receive Date: 20240917
  Receipt Date: 20240917
  Transmission Date: 20241017
  Serious: No
  Sender: GLAXOSMITHKLINE
  Company Number: US-GSK-US2024113121

PATIENT
  Sex: Female

DRUGS (2)
  1. BENLYSTA [Suspect]
     Active Substance: BELIMUMAB
     Indication: Product used for unknown indication
     Dosage: UNK
  2. HYDROXYCHLOROQUINE [Concomitant]
     Active Substance: HYDROXYCHLOROQUINE
     Indication: Systemic lupus erythematosus
     Dosage: UNK

REACTIONS (9)
  - Musculoskeletal discomfort [Unknown]
  - Limb discomfort [Unknown]
  - Arthralgia [Unknown]
  - Joint stiffness [Unknown]
  - Muscle rigidity [Unknown]
  - Joint swelling [Unknown]
  - Carpal tunnel syndrome [Unknown]
  - Wrong technique in device usage process [Unknown]
  - Product complaint [Unknown]
